FAERS Safety Report 8142111 (Version 3)
Quarter: 2013Q1

REPORT INFORMATION
  Report Type: Spontaneous
  Country: US (occurrence: US)
  Receive Date: 20110919
  Receipt Date: 20130115
  Transmission Date: 20140127
  Serious: Yes (Hospitalization, Other)
  Sender: FDA-Public Use
  Company Number: US-ROCHE-802071

PATIENT
  Age: 17 Year
  Sex: Male
  Weight: 52.21 kg

DRUGS (1)
  1. ACCUTANE [Suspect]
     Indication: ACNE
     Dosage: 40 MG
     Route: 048
     Dates: start: 19941115, end: 19950330

REACTIONS (8)
  - Crohn^s disease [Unknown]
  - Inflammatory bowel disease [Unknown]
  - Depression [Not Recovered/Not Resolved]
  - Injury [Unknown]
  - Enterocolonic fistula [Unknown]
  - Pelvic abscess [Unknown]
  - Intestinal obstruction [Unknown]
  - Blood triglycerides increased [Unknown]
